FAERS Safety Report 9484150 (Version 1)
Quarter: 2013Q3

REPORT INFORMATION
  Report Type: Spontaneous
  Country: US (occurrence: US)
  Receive Date: 20130828
  Receipt Date: 20130828
  Transmission Date: 20140515
  Serious: Yes (Other)
  Sender: FDA-Public Use
  Company Number: US-PURDUE-USA-2013-0105698

PATIENT
  Age: 54 Year
  Sex: Female

DRUGS (3)
  1. OXYCONTIN (NDA 22-272) [Suspect]
     Indication: PAIN
     Dosage: 40 MG, BID
     Route: 048
     Dates: start: 199911
  2. SOMA [Concomitant]
     Indication: PAIN
     Dosage: 40 MG, TID
     Route: 048
     Dates: start: 199912
  3. PERCOCET                           /00867901/ [Concomitant]
     Indication: PAIN
     Dosage: 1 TABLET, QID, 10/325 MG
     Dates: start: 2010

REACTIONS (8)
  - Overdose [Unknown]
  - Myocardial infarction [Unknown]
  - Cerebrovascular accident [Unknown]
  - Loss of consciousness [Recovered/Resolved]
  - Dizziness [Recovered/Resolved]
  - Dyspnoea [Recovered/Resolved]
  - Somnolence [Recovered/Resolved]
  - Amnesia [Unknown]
